FAERS Safety Report 19631156 (Version 1)
Quarter: 2021Q3

REPORT INFORMATION
  Report Type: Spontaneous
  Country: HR (occurrence: HR)
  Receive Date: 20210728
  Receipt Date: 20210728
  Transmission Date: 20211014
  Serious: Yes (Hospitalization)
  Sender: FDA-Public Use
  Company Number: HR-PFIZER INC-2021891254

PATIENT
  Age: 59 Year
  Sex: Female

DRUGS (5)
  1. CYCLOPHOSPHAMIDE. [Suspect]
     Active Substance: CYCLOPHOSPHAMIDE
     Indication: FOLLICULAR LYMPHOMA
     Dosage: UNK
     Dates: start: 20200201
  2. VINCRISTINE [Suspect]
     Active Substance: VINCRISTINE
     Indication: FOLLICULAR LYMPHOMA
     Dosage: UNK
     Dates: start: 20200201
  3. PREDNISONE. [Suspect]
     Active Substance: PREDNISONE
     Indication: FOLLICULAR LYMPHOMA
     Dosage: UNK
     Dates: start: 20200201
  4. DOXORUBICIN [Suspect]
     Active Substance: DOXORUBICIN
     Indication: FOLLICULAR LYMPHOMA
     Dosage: UNK
     Dates: start: 20200201
  5. GAZYVARO [Suspect]
     Active Substance: OBINUTUZUMAB
     Indication: FOLLICULAR LYMPHOMA
     Dosage: UNK
     Route: 042
     Dates: start: 20200201

REACTIONS (1)
  - COVID-19 [Recovered/Resolved]

NARRATIVE: CASE EVENT DATE: 20210217
